FAERS Safety Report 8589562-0 (Version None)
Quarter: 2012Q3

REPORT INFORMATION
  Report Type: 
  Country: None (occurrence: None)
  Receive Date: 20120813
  Receipt Date: 20120803
  Transmission Date: 20120928
  Serious: No
  Sender: FDA-Public Use
  Company Number: ES-ACTELION-A-CH2012-68364

PATIENT
  Age: 69 Year
  Sex: Female

DRUGS (7)
  1. TRACLEER [Suspect]
     Indication: PULMONARY ARTERIAL HYPERTENSION
     Dosage: 125 MG, BID
     Route: 048
     Dates: start: 20110101
  2. WARFARIN SODIUM [Concomitant]
  3. TRACLEER [Suspect]
     Dosage: 62.5 MG, BID
     Route: 048
     Dates: start: 20101201, end: 20110101
  4. ACETAMINOPHEN [Suspect]
     Dosage: UNK
     Dates: start: 20120701, end: 20120701
  5. FUROSEMIDE [Concomitant]
  6. SILDENAFIL [Concomitant]
  7. SPIRONOLACTONE [Concomitant]

REACTIONS (10)
  - HEPATIC ENZYME INCREASED [None]
  - PORTAL VEIN FLOW DECREASED [None]
  - ASPARTATE AMINOTRANSFERASE [None]
  - GAMMA-GLUTAMYLTRANSFERASE INCREASED [None]
  - ALANINE AMINOTRANSFERASE INCREASED [None]
  - LIVER DISORDER [None]
  - PORTAL HYPERTENSION [None]
  - RETROGRADE PORTAL VEIN FLOW [None]
  - VARICES OESOPHAGEAL [None]
  - SPLENOMEGALY [None]
